FAERS Safety Report 16217155 (Version 1)
Quarter: 2019Q2

REPORT INFORMATION
  Report Type: Spontaneous
  Country: ES (occurrence: ES)
  Receive Date: 20190419
  Receipt Date: 20190419
  Transmission Date: 20190711
  Serious: Yes (Other)
  Sender: FDA-Public Use
  Company Number: ES-AUROBINDO-AUR-APL-2019-021215

PATIENT

DRUGS (25)
  1. FENTANYL. [Suspect]
     Active Substance: FENTANYL
     Indication: BREAKTHROUGH PAIN
     Dosage: 200 MICROGRAM, 200 UG SP
     Route: 045
     Dates: start: 201508, end: 2015
  2. FENTANYL. [Suspect]
     Active Substance: FENTANYL
     Dosage: 400 UG SP, PRN (3-4 DAILY) 400 MICROGRAM
     Route: 045
     Dates: start: 201509
  3. NIVOLUMAB [Concomitant]
     Active Substance: NIVOLUMAB
     Indication: BREAKTHROUGH PAIN
     Dosage: UNK
     Route: 065
  4. DEXKETOPROFEN [Concomitant]
     Active Substance: DEXKETOPROFEN
     Indication: MUSCLE CONTRACTURE
     Dosage: UNK
     Route: 065
  5. FENTANYL. [Suspect]
     Active Substance: FENTANYL
     Dosage: 100 MICROGRAM, 100 UG SP, PRN (2 DAILY MAXIMUM)
     Route: 045
     Dates: start: 2015, end: 2015
  6. PREGABALIN. [Concomitant]
     Active Substance: PREGABALIN
     Indication: MUSCLE CONTRACTURE
  7. DEXKETOPROFEN [Concomitant]
     Active Substance: DEXKETOPROFEN
     Indication: BREAKTHROUGH PAIN
     Dosage: 25 MILLIGRAM, 8 HOUR, 25 MG, Q8H
     Route: 065
     Dates: start: 2015
  8. PARACETAMOL [Suspect]
     Active Substance: ACETAMINOPHEN
     Indication: NECK PAIN
  9. FENTANYL. [Suspect]
     Active Substance: FENTANYL
     Dosage: 100 MICROGRAM, 100 UG SP
     Route: 045
     Dates: end: 201709
  10. DIAZEPAM. [Concomitant]
     Active Substance: DIAZEPAM
     Indication: NECK PAIN
     Dosage: 5 MILLIGRAM, DAILY
     Route: 065
     Dates: start: 2015
  11. PREGABALIN. [Concomitant]
     Active Substance: PREGABALIN
     Indication: BREAKTHROUGH PAIN
  12. DIAZEPAM. [Concomitant]
     Active Substance: DIAZEPAM
     Indication: BREAKTHROUGH PAIN
  13. AFATINIB [Concomitant]
     Active Substance: AFATINIB
     Indication: ADENOCARCINOMA
     Dosage: 40 MG DAILY
     Route: 065
     Dates: start: 201501
  14. DOCETAXEL. [Concomitant]
     Active Substance: DOCETAXEL
     Indication: ADENOCARCINOMA
     Dosage: 75 MG/M2, 3 WEEK, EVERY 21 DAYS
     Route: 065
     Dates: start: 201505
  15. DEXKETOPROFEN [Concomitant]
     Active Substance: DEXKETOPROFEN
     Indication: NECK PAIN
  16. PARACETAMOL [Suspect]
     Active Substance: ACETAMINOPHEN
     Indication: MUSCLE CONTRACTURE
  17. NIVOLUMAB [Concomitant]
     Active Substance: NIVOLUMAB
     Indication: NECK PAIN
     Dosage: 3 MILLIGRAM/KILOGRAM, 3 WEEK, 3 MG/KG, 21 DAYS
     Route: 065
  18. PARACETAMOL [Suspect]
     Active Substance: ACETAMINOPHEN
     Indication: BREAKTHROUGH PAIN
     Dosage: 1 GRAM, 8 HOUR, 1 G, Q8H
     Route: 065
     Dates: start: 2015, end: 201709
  19. FENTANYL. [Suspect]
     Active Substance: FENTANYL
     Indication: BREAKTHROUGH PAIN
     Dosage: 25 MICROGRAM, 25 MCG/72 HOURS
     Route: 065
  20. FENTANYL. [Suspect]
     Active Substance: FENTANYL
     Dosage: 200 MICROGRAM, 200 UG SP
     Route: 045
  21. DIAZEPAM. [Concomitant]
     Active Substance: DIAZEPAM
     Indication: MUSCLE CONTRACTURE
     Dosage: UNK
     Route: 065
  22. AFATINIB [Concomitant]
     Active Substance: AFATINIB
     Indication: EGFR GENE MUTATION
  23. FENTANYL. [Suspect]
     Active Substance: FENTANYL
     Indication: MUSCLE CONTRACTURE
     Dosage: 50 MCG/72 HOURS
     Route: 065
     Dates: start: 201509
  24. FENTANYL. [Suspect]
     Active Substance: FENTANYL
     Indication: NECK PAIN
     Dosage: 12 MICROGRAM, 12 MCG/72 HOURS
     Route: 065
     Dates: start: 201508
  25. PREGABALIN. [Concomitant]
     Active Substance: PREGABALIN
     Indication: NECK PAIN
     Dosage: 75 MG DAILY
     Route: 065
     Dates: start: 201508

REACTIONS (3)
  - Therapy naive [Recovered/Resolved]
  - Diarrhoea [Unknown]
  - Off label use [Recovered/Resolved]

NARRATIVE: CASE EVENT DATE: 2015
